FAERS Safety Report 25407288 (Version 3)
Quarter: 2025Q4

REPORT INFORMATION
  Report Type: Spontaneous
  Country: US (occurrence: US)
  Receive Date: 20250606
  Receipt Date: 20251029
  Transmission Date: 20260118
  Serious: No
  Sender: BRISTOL-MYERS SQUIBB COMPANY
  Company Number: US-BRISTOL-MYERS SQUIBB COMPANY-2025-081092

PATIENT
  Age: 53 Year
  Sex: Female

DRUGS (2)
  1. ORENCIA [Suspect]
     Active Substance: ABATACEPT
     Indication: Rheumatoid arthritis
     Dosage: CODE UNIT: 125 MG/ML
     Route: 058
     Dates: start: 202505
  2. ORENCIA [Suspect]
     Active Substance: ABATACEPT
     Route: 058
     Dates: start: 202505

REACTIONS (6)
  - Joint swelling [Unknown]
  - Arthralgia [Unknown]
  - Dyspnoea [Unknown]
  - Restlessness [Unknown]
  - Yawning [Unknown]
  - Agitation [Unknown]

NARRATIVE: CASE EVENT DATE: 20250501
